FAERS Safety Report 15856916 (Version 2)
Quarter: 2019Q4

REPORT INFORMATION
  Report Type: Spontaneous
  Country: US (occurrence: US)
  Receive Date: 20190123
  Receipt Date: 20191224
  Transmission Date: 20200122
  Serious: Yes (Hospitalization, Other)
  Sender: FDA-Public Use
  Company Number: US-JNJFOC-20190116623

PATIENT
  Age: 23 Year
  Sex: Female
  Weight: 90.72 kg

DRUGS (4)
  1. ZOLOFT [Concomitant]
     Active Substance: SERTRALINE HYDROCHLORIDE
     Indication: PRODUCT USED FOR UNKNOWN INDICATION
     Route: 065
  2. NEUTROGENA OIL FREE ACNE MOISTURIZER PINK GRAPEFRUIT [Suspect]
     Active Substance: SALICYLIC ACID
     Indication: ACNE
     Dosage: LIBERALLY DIME SIZE AMOUNT
     Route: 061
     Dates: start: 20190108, end: 20190110
  3. NEUTROGENA OIL FREE ACNE WASH PINK GRAPEFRUIT FOAMING SCRUB [Suspect]
     Active Substance: SALICYLIC ACID
     Indication: ACNE
     Route: 061
     Dates: start: 20190108, end: 20190110
  4. NEUTROGENA OIL FREE ACNE WASH PINK GRAPEFRUIT CLEANSING WIPES [Suspect]
     Active Substance: SALICYLIC ACID
     Indication: ACNE
     Dosage: TWICE A DAY ONE WIPES
     Route: 061
     Dates: start: 20190108, end: 20190110

REACTIONS (2)
  - Chemical burn [Not Recovered/Not Resolved]
  - Throat tightness [Unknown]

NARRATIVE: CASE EVENT DATE: 20190110
